FAERS Safety Report 9030511 (Version 1)
Quarter: 2013Q1

REPORT INFORMATION
  Report Type: Spontaneous
  Country: US (occurrence: US)
  Receive Date: 20130122
  Receipt Date: 20130122
  Transmission Date: 20140127
  Serious: No
  Sender: FDA-Public Use
  Company Number: US-VERTEX PHARMACEUTICALS INC.-2013-000859

PATIENT
  Age: 59 Year
  Sex: Female
  Weight: 66 kg

DRUGS (3)
  1. INCIVEK [Suspect]
     Indication: HEPATITIS C
     Dosage: 750 MG, TID
     Route: 048
     Dates: start: 20130115
  2. PEGASYS [Suspect]
     Indication: HEPATITIS C
     Dosage: 180 ?G, QW
     Route: 058
     Dates: start: 20130115
  3. RIBAVIRIN [Suspect]
     Indication: HEPATITIS C
     Dosage: 3 DF AM, 2 DF PM, QD
     Dates: start: 20130115

REACTIONS (3)
  - Diarrhoea [Recovered/Resolved]
  - Anorectal discomfort [Not Recovered/Not Resolved]
  - Vomiting [Recovered/Resolved]
